FAERS Safety Report 8954028 (Version 2)
Quarter: 2012Q4

REPORT INFORMATION
  Report Type: 
  Country: US (occurrence: US)
  Receive Date: 20121207
  Receipt Date: 20121212
  Transmission Date: 20130627
  Serious: No
  Sender: FDA-Public Use
  Company Number: US-TEVA-374494USA

PATIENT
  Age: 39 Year
  Sex: Female
  Weight: 59.02 kg

DRUGS (3)
  1. NUVIGIL [Suspect]
     Indication: HYPERSOMNIA
     Dosage: 75 Milligram Daily; 1/2 tab QAM
     Route: 048
     Dates: start: 20121126, end: 20121203
  2. NUVIGIL [Suspect]
     Dosage: 150 Milligram Daily;
     Route: 048
     Dates: start: 20121127
  3. SYNTHROID [Concomitant]
     Indication: THYROIDECTOMY
     Dosage: 300 Microgram Daily;
     Route: 048

REACTIONS (9)
  - Arthralgia [Recovering/Resolving]
  - Myalgia [Recovering/Resolving]
  - Nausea [Recovered/Resolved]
  - Psychomotor hyperactivity [Unknown]
  - Migraine [Recovered/Resolved]
  - Anxiety [Unknown]
  - Insomnia [Not Recovered/Not Resolved]
  - Drug ineffective [Recovered/Resolved]
  - Off label use [Unknown]
